FAERS Safety Report 7335451-9 (Version None)
Quarter: 2011Q1

REPORT INFORMATION
  Report Type: 
  Country: None (occurrence: None)
  Receive Date: 20110307
  Receipt Date: 20110225
  Transmission Date: 20110831
  Serious: Yes (Other)
  Sender: FDA-Public Use
  Company Number: GB-BRISTOL-MYERS SQUIBB COMPANY-15519531

PATIENT
  Age: 70 Year
  Sex: Female

DRUGS (1)
  1. METFORMIN HCL [Suspect]
     Dosage: PRESCRIBED: 2 X 850 MG (TWICE DAILY),ALSO TAKEN 1G

REACTIONS (3)
  - MEDICATION ERROR [None]
  - HYPOGLYCAEMIA [None]
  - OVERDOSE [None]
